FAERS Safety Report 14970615 (Version 1)
Quarter: 2018Q2

REPORT INFORMATION
  Report Type: Report from Study
  Country: US (occurrence: US)
  Receive Date: 20180604
  Receipt Date: 20180604
  Transmission Date: 20180711
  Serious: Yes (Hospitalization)
  Sender: FDA-Public Use
  Company Number: US-JNJFOC-20180541845

PATIENT
  Sex: Male

DRUGS (2)
  1. WINSTROL [Concomitant]
     Active Substance: STANOZOLOL
  2. IMBRUVICA [Suspect]
     Active Substance: IBRUTINIB
     Indication: MANTLE CELL LYMPHOMA
     Route: 048
     Dates: start: 20180505, end: 201805

REACTIONS (1)
  - Heart rate increased [Unknown]
